FAERS Safety Report 4870554-X (Version None)
Quarter: 2005Q4

REPORT INFORMATION
  Report Type: 
  Country: None (occurrence: None)
  Receive Date: 20051228
  Receipt Date: 20051216
  Transmission Date: 20060501
  Serious: Yes (Hospitalization)
  Sender: FDA-Public Use
  Company Number: KII-2005-0020271

PATIENT
  Age: 82 Year
  Sex: Female

DRUGS (1)
  1. MORPHINE SULFATE [Suspect]
     Indication: ACCIDENTAL EXPOSURE
     Dosage: SEE TEXT, ORAL
     Route: 048
     Dates: start: 20051120

REACTIONS (3)
  - ACCIDENTAL EXPOSURE [None]
  - BLOOD POTASSIUM DECREASED [None]
  - SINUS BRADYCARDIA [None]
